FAERS Safety Report 12525146 (Version 2)
Quarter: 2016Q3

REPORT INFORMATION
  Report Type: Spontaneous
  Country: JP (occurrence: JP)
  Receive Date: 20160704
  Receipt Date: 20160805
  Transmission Date: 20161109
  Serious: Yes (Other)
  Sender: FDA-Public Use
  Company Number: JP-AMGEN-JPNSP2016085734

PATIENT
  Age: 79 Year
  Sex: Male

DRUGS (6)
  1. RANMARK [Suspect]
     Active Substance: DENOSUMAB
     Dosage: 120 MG, UNK
     Route: 065
     Dates: start: 20150902
  2. RANMARK [Suspect]
     Active Substance: DENOSUMAB
     Dosage: 120 MG, UNK
     Route: 065
     Dates: start: 20151104
  3. RANMARK [Suspect]
     Active Substance: DENOSUMAB
     Dosage: 120 MG, UNK
     Route: 065
     Dates: start: 20140318
  4. RANMARK [Suspect]
     Active Substance: DENOSUMAB
     Dosage: 120 MG, UNK
     Route: 065
     Dates: start: 20140930
  5. RANMARK [Suspect]
     Active Substance: DENOSUMAB
     Indication: PROSTATE CANCER
     Dosage: 120 MG, UNK
     Route: 065
     Dates: start: 20131112
  6. RANMARK [Suspect]
     Active Substance: DENOSUMAB
     Dosage: 120 MG, UNK
     Route: 065
     Dates: start: 20160217

REACTIONS (1)
  - Osteonecrosis of jaw [Not Recovered/Not Resolved]
